FAERS Safety Report 18079864 (Version 2)
Quarter: 2021Q1

REPORT INFORMATION
  Report Type: Spontaneous
  Country: US (occurrence: US)
  Receive Date: 20200728
  Receipt Date: 20210203
  Transmission Date: 20210419
  Serious: Yes (Other)
  Sender: FDA-Public Use
  Company Number: US-PFIZER INC-2020285156

PATIENT
  Age: 71 Year
  Sex: Female
  Weight: 92.52 kg

DRUGS (8)
  1. MAXZIDE [Suspect]
     Active Substance: HYDROCHLOROTHIAZIDE\TRIAMTERENE
     Indication: HYPERTENSION
     Dosage: UNK
     Route: 048
     Dates: end: 202006
  2. COENZYME Q10 [Suspect]
     Active Substance: DIETARY SUPPLEMENT\UBIDECARENONE
     Indication: SUPPLEMENTATION THERAPY
     Dosage: 1 DF, 1X/DAY (ONE SOFTGEL IN THE MORNING WITH MEAL AND WATER)
     Route: 048
     Dates: start: 201908, end: 202005
  3. THEOPHYLLINE [Concomitant]
     Active Substance: THEOPHYLLINE ANHYDROUS
     Indication: ASTHMA
     Dosage: UNK
     Route: 048
  4. VITAMIN C [Concomitant]
     Active Substance: ASCORBIC ACID
     Indication: SUPPLEMENTATION THERAPY
     Dosage: UNK
     Route: 048
  5. TYLENOL [Concomitant]
     Active Substance: ACETAMINOPHEN
     Dosage: UNK
     Route: 048
  6. VITAMIN K [PHYTOMENADIONE] [Concomitant]
     Indication: SUPPLEMENTATION THERAPY
     Dosage: UNK
     Route: 048
  7. MILK THISTLE EXTRACT [Suspect]
     Active Substance: DIETARY SUPPLEMENT\HERBALS\MILK THISTLE
     Indication: SUPPLEMENTATION THERAPY
     Dosage: 1000 MG, 1X/DAY (ONE SOFTGEL IN THE AFTERNOON WITH MEALS AND WATER)
     Route: 048
     Dates: start: 201908, end: 202005
  8. CARDURA [Suspect]
     Active Substance: DOXAZOSIN MESYLATE
     Indication: HYPERTENSION
     Dosage: UNK
     Route: 048
     Dates: end: 202006

REACTIONS (12)
  - Diarrhoea [Recovered/Resolved]
  - Blood pressure increased [Unknown]
  - Blood sodium decreased [Unknown]
  - Hypotension [Recovering/Resolving]
  - Asthenia [Unknown]
  - Dizziness [Unknown]
  - Loss of consciousness [Unknown]
  - Fatigue [Unknown]
  - Abdominal pain lower [Recovered/Resolved]
  - Blood pressure fluctuation [Not Recovered/Not Resolved]
  - Tremor [Unknown]
  - Nausea [Unknown]

NARRATIVE: CASE EVENT DATE: 201908
